FAERS Safety Report 16420622 (Version 2)
Quarter: 2019Q2

REPORT INFORMATION
  Report Type: Spontaneous
  Country: FR (occurrence: FR)
  Receive Date: 20190612
  Receipt Date: 20190619
  Transmission Date: 20190711
  Serious: Yes (Other)
  Sender: FDA-Public Use
  Company Number: FR-EISAI MEDICAL RESEARCH-EC-2019-057478

PATIENT
  Age: 51 Year
  Sex: Male

DRUGS (4)
  1. HALAVEN [Suspect]
     Active Substance: ERIBULIN MESYLATE
     Indication: BREAST CANCER
     Dosage: UNKNOWN
     Route: 041
     Dates: start: 201711, end: 20180614
  2. RAMIPRIL. [Concomitant]
     Active Substance: RAMIPRIL
     Indication: PRODUCT USED FOR UNKNOWN INDICATION
     Dosage: DOSE AND FREQUENCY UNKNOWN
     Route: 065
  3. ALDACTONE [Concomitant]
     Active Substance: SPIRONOLACTONE
     Indication: PRODUCT USED FOR UNKNOWN INDICATION
     Dosage: DOSE AND FREQUENCY UNKNOWN
     Route: 065
  4. PROCORALAN [Concomitant]
     Active Substance: IVABRADINE
     Indication: PRODUCT USED FOR UNKNOWN INDICATION
     Dosage: DOSE AND FREQUENCY UNKNOWN
     Route: 065

REACTIONS (1)
  - Neuropathy peripheral [Recovering/Resolving]

NARRATIVE: CASE EVENT DATE: 201805
